FAERS Safety Report 24354209 (Version 1)
Quarter: 2024Q3

REPORT INFORMATION
  Report Type: Spontaneous
  Country: US (occurrence: US)
  Receive Date: 20240923
  Receipt Date: 20240923
  Transmission Date: 20241017
  Serious: No
  Sender: PFIZER
  Company Number: US-PFIZER INC-PV202400122762

PATIENT

DRUGS (5)
  1. HYDROXYZINE PAMOATE [Suspect]
     Active Substance: HYDROXYZINE PAMOATE
     Indication: Urticaria
     Dosage: 3 DF, 1X/DAY (AT NIGHT)
  2. HYDROXYZINE PAMOATE [Suspect]
     Active Substance: HYDROXYZINE PAMOATE
     Indication: Inflammation
     Dosage: 5 DF (WHEN IT^S BAD)
  3. FEXOFENADINE [Suspect]
     Active Substance: FEXOFENADINE HYDROCHLORIDE
     Indication: Urticaria
     Dosage: 2 DF (2 IN THE MORNING)
  4. FEXOFENADINE [Suspect]
     Active Substance: FEXOFENADINE HYDROCHLORIDE
     Indication: Inflammation
     Dosage: 2 DF (EARLY EVENING WHEN IT^S BAD)
  5. XOLAIR [Suspect]
     Active Substance: OMALIZUMAB
     Dosage: 300 G EVERY 4 WEEKS

REACTIONS (3)
  - Fatigue [Unknown]
  - Off label use [Unknown]
  - Drug ineffective [Unknown]
